FAERS Safety Report 9289056 (Version 2)
Quarter: 2013Q2

REPORT INFORMATION
  Report Type: Spontaneous
  Country: TW (occurrence: TW)
  Receive Date: 20130514
  Receipt Date: 20130627
  Transmission Date: 20140414
  Serious: Yes (Hospitalization)
  Sender: FDA-Public Use
  Company Number: TW-ABBOTT-13P-153-1088791-00

PATIENT
  Age: 66 Year
  Sex: Female
  Weight: 62 kg

DRUGS (7)
  1. HUMIRA [Suspect]
     Indication: ANKYLOSING SPONDYLITIS
     Route: 058
     Dates: start: 20121218, end: 20130424
  2. HUMIRA [Suspect]
     Dates: start: 20130515
  3. CELECOXIB [Concomitant]
     Indication: ANKYLOSING SPONDYLITIS
     Route: 048
     Dates: end: 20130506
  4. FLUDIAZEPAM [Concomitant]
     Indication: ANKYLOSING SPONDYLITIS
     Route: 048
     Dates: end: 20130506
  5. METHYLPREDNISOLONE [Concomitant]
     Indication: PRODUCT USED FOR UNKNOWN INDICATION
     Route: 048
     Dates: end: 20130506
  6. PROSULTIAMINE+VIT B2 [Concomitant]
     Indication: PRODUCT USED FOR UNKNOWN INDICATION
     Dosage: 50MG+5MG
     Route: 048
     Dates: end: 20130506
  7. SENNOSIDE A+B CALCIUM [Concomitant]
     Indication: PRODUCT USED FOR UNKNOWN INDICATION
     Route: 048
     Dates: end: 20130506

REACTIONS (2)
  - Gastric perforation [Recovered/Resolved]
  - Abdominal pain [Recovered/Resolved]
